FAERS Safety Report 16346092 (Version 3)
Quarter: 2019Q2

REPORT INFORMATION
  Report Type: Report from Study
  Country: US (occurrence: US)
  Receive Date: 20190523
  Receipt Date: 20190621
  Transmission Date: 20190711
  Serious: Yes (Death, Life-Threatening, Hospitalization, Other)
  Sender: FDA-Public Use
  Company Number: US-BRISTOL-MYERS SQUIBB COMPANY-BMS-2019-049387

PATIENT
  Age: 61 Year
  Sex: Female
  Weight: 88.5 kg

DRUGS (3)
  1. NIVOLUMAB [Suspect]
     Active Substance: NIVOLUMAB
     Indication: BREAST CANCER
     Dosage: 570 MILLIGRAM
     Route: 065
     Dates: start: 20190418
  2. IPILIMUMAB [Suspect]
     Active Substance: IPILIMUMAB
     Indication: BREAST CANCER
     Dosage: 95 MILLIGRAM
     Route: 065
     Dates: start: 20190418
  3. ENTINOSTAT [Suspect]
     Active Substance: ENTINOSTAT
     Indication: BREAST CANCER
     Dosage: 19 MILLIGRAM
     Route: 065
     Dates: start: 20190404

REACTIONS (6)
  - Dyspnoea [Recovered/Resolved]
  - Pleural effusion [Unknown]
  - Cardiac tamponade [Unknown]
  - Respiratory failure [Fatal]
  - Hyperkalaemia [Unknown]
  - Atrial fibrillation [Unknown]

NARRATIVE: CASE EVENT DATE: 20190408
